FAERS Safety Report 13137627 (Version 2)
Quarter: 2017Q1

REPORT INFORMATION
  Report Type: Report from Study
  Country: US (occurrence: US)
  Receive Date: 20170123
  Receipt Date: 20170303
  Transmission Date: 20170428
  Serious: Yes (Hospitalization)
  Sender: FDA-Public Use
  Company Number: US-BAYER-2017-006039

PATIENT
  Age: 80 Year
  Sex: Female

DRUGS (2)
  1. STIVARGA [Suspect]
     Active Substance: REGORAFENIB
     Indication: COLON CANCER
     Dosage: 160 MG, QD
     Route: 048
     Dates: start: 20161229, end: 20170105
  2. STIVARGA [Suspect]
     Active Substance: REGORAFENIB
     Indication: COLON CANCER
     Dosage: 160 MG, QD
     Route: 048
     Dates: start: 20170118, end: 20170215

REACTIONS (4)
  - Hypersensitivity [None]
  - Therapeutic product ineffective [None]
  - Diarrhoea [Not Recovered/Not Resolved]
  - Medical procedure [None]

NARRATIVE: CASE EVENT DATE: 201701
